FAERS Safety Report 8158384-7 (Version None)
Quarter: 2012Q1

REPORT INFORMATION
  Report Type: 
  Country: None (occurrence: None)
  Receive Date: 20120223
  Receipt Date: 20120217
  Transmission Date: 20120608
  Serious: Yes (Other)
  Sender: FDA-Public Use
  Company Number: NL-BAYER-2012-016127

PATIENT
  Sex: Female

DRUGS (1)
  1. MIRENA [Suspect]
     Dosage: UNK
     Route: 015
     Dates: start: 20100101, end: 20100901

REACTIONS (4)
  - DEVICE DISLOCATION [None]
  - DEVICE BREAKAGE [None]
  - COMPLICATION OF DEVICE REMOVAL [None]
  - DEVICE EXPULSION [None]
